FAERS Safety Report 21073941 (Version 2)
Quarter: 2022Q3

REPORT INFORMATION
  Report Type: Spontaneous
  Country: AU (occurrence: AU)
  Receive Date: 20220713
  Receipt Date: 20220810
  Transmission Date: 20221026
  Serious: Yes (Other)
  Sender: FDA-Public Use
  Company Number: AU-BAYER-2022A095268

PATIENT
  Age: 86 Year
  Sex: Male

DRUGS (3)
  1. RIVAROXABAN [Suspect]
     Active Substance: RIVAROXABAN
     Indication: Thrombosis
     Dosage: 20 MG, QD
     Route: 048
     Dates: start: 20200101, end: 20220703
  2. MINAX [METOPROLOL SUCCINATE] [Concomitant]
     Dosage: UNK
  3. CROSUVA [Concomitant]
     Dosage: UNK

REACTIONS (6)
  - Thrombosis [Unknown]
  - Peripheral swelling [Unknown]
  - Feeling hot [Unknown]
  - Erythema [Unknown]
  - Joint swelling [Unknown]
  - Joint warmth [Unknown]

NARRATIVE: CASE EVENT DATE: 20220514
